FAERS Safety Report 23075158 (Version 3)
Quarter: 2023Q4

REPORT INFORMATION
  Report Type: Spontaneous
  Country: CA (occurrence: CA)
  Receive Date: 20231017
  Receipt Date: 20231227
  Transmission Date: 20240110
  Serious: Yes (Other)
  Sender: FDA-Public Use
  Company Number: CA-PFIZER INC-202300182743

PATIENT
  Age: 15 Year
  Sex: Male

DRUGS (2)
  1. NGENLA [Suspect]
     Active Substance: SOMATROGON-GHLA
     Indication: Growth hormone deficiency
     Dosage: 2.5 MG, WEEKLY (SUPPOSED TO RECEIVE 25 MG)
     Route: 058
     Dates: start: 20230109
  2. NGENLA [Suspect]
     Active Substance: SOMATROGON-GHLA
     Dosage: 25 MG, WEEKLY
     Route: 058
     Dates: start: 2023

REACTIONS (2)
  - Accidental underdose [Unknown]
  - Product communication issue [Unknown]

NARRATIVE: CASE EVENT DATE: 20230109
